FAERS Safety Report 4683047-X (Version None)
Quarter: 2005Q2

REPORT INFORMATION
  Report Type: 
  Country: None (occurrence: None)
  Receive Date: 20050602
  Receipt Date: 20050209
  Transmission Date: 20051028
  Serious: No
  Sender: FDA-Public Use
  Company Number: USA050290433

PATIENT
  Age: 57 Year
  Sex: Female

DRUGS (5)
  1. CYMBALTA [Suspect]
     Indication: DEPRESSION
     Dosage: 30 MG DAY
     Dates: start: 20050209
  2. HORMONE REPLACEMENT THERAPY [Concomitant]
  3. ASPIRIN [Concomitant]
  4. ZANAFLEX [Concomitant]
  5. XANAX (ALPRAZOLAM DUM) [Concomitant]

REACTIONS (5)
  - BLOOD PRESSURE INCREASED [None]
  - IRRITABILITY [None]
  - MALAISE [None]
  - NAUSEA [None]
  - SOMNOLENCE [None]
